FAERS Safety Report 24565092 (Version 2)
Quarter: 2024Q4

REPORT INFORMATION
  Report Type: Report from Study
  Country: US (occurrence: US)
  Receive Date: 20241030
  Receipt Date: 20241128
  Transmission Date: 20250115
  Serious: Yes (Other)
  Sender: AMGEN
  Company Number: US-AMGEN-HZN-2022-009942

PATIENT
  Age: 63 Year
  Sex: Female

DRUGS (16)
  1. TEPEZZA [Suspect]
     Active Substance: TEPROTUMUMAB-TRBW
     Indication: Endocrine ophthalmopathy
     Dosage: 540 MILLIGRAM, Q3WK (FIRST INFUSION)
     Route: 042
     Dates: start: 20221129
  2. TEPEZZA [Suspect]
     Active Substance: TEPROTUMUMAB-TRBW
     Indication: Graves^ disease
     Dosage: 1080 MILLIGRAM, Q3WK  (SECOND INFUSION)
     Route: 042
     Dates: start: 20221220
  3. TEPEZZA [Suspect]
     Active Substance: TEPROTUMUMAB-TRBW
     Dosage: 1080 MILLIGRAM, Q3WK (THIRD INFUSION)
     Route: 040
     Dates: start: 20230110
  4. TEPEZZA [Suspect]
     Active Substance: TEPROTUMUMAB-TRBW
     Dosage: 1080 MILLIGRAM, Q3WK (FOURTH INFUSION)
     Route: 042
     Dates: start: 20230209
  5. SODIUM CHLORIDE [Concomitant]
     Active Substance: SODIUM CHLORIDE
     Dosage: (STRENGTH: 100.0 MILLILITRE)
  6. OXYCONTIN [Concomitant]
     Active Substance: OXYCODONE HYDROCHLORIDE
  7. TUMS [Concomitant]
     Active Substance: CALCIUM CARBONATE
  8. ROCALTROL [Concomitant]
     Active Substance: CALCITRIOL
     Dosage: 0.25 MICROGRAM, QD
     Route: 048
     Dates: start: 20220322
  9. Romycin [Concomitant]
     Dosage: UNK (5MG/GM)
     Route: 047
     Dates: start: 20230417
  10. NEURONTIN [Concomitant]
     Active Substance: GABAPENTIN
     Dosage: 300 MICROGRAM, TID
     Route: 048
  11. SYNTHROID [Concomitant]
     Active Substance: LEVOTHYROXINE SODIUM
     Dosage: 125 MICROGRAM, QD
     Route: 048
     Dates: start: 20230718
  12. MEDROL [Concomitant]
     Active Substance: METHYLPREDNISOLONE
     Dosage: 4 MILLIGRAM
     Route: 048
     Dates: start: 20230629, end: 20231129
  13. MOVANTIK [Concomitant]
     Active Substance: NALOXEGOL OXALATE
     Dosage: 12.5 MILLIGRAM, QD
     Route: 048
     Dates: start: 20230717
  14. PRILOSEC [Concomitant]
     Active Substance: OMEPRAZOLE MAGNESIUM
     Indication: Gastrooesophageal reflux disease
     Dosage: 20 MILLIGRAM, BID
     Route: 048
     Dates: start: 20231115
  15. Ultran [Concomitant]
     Dosage: 50 MILLIGRAM
     Dates: start: 20230726
  16. XTAMPZA ER [Concomitant]
     Active Substance: OXYCODONE
     Dosage: 13.5 MILLIGRAM
     Dates: start: 20230410, end: 20231129

REACTIONS (29)
  - Deafness neurosensory [Not Recovered/Not Resolved]
  - Endocrine ophthalmopathy [Unknown]
  - Graves^ disease [Unknown]
  - Carotid artery aneurysm [Unknown]
  - Intracranial aneurysm [Unknown]
  - Hepatitis [Unknown]
  - Tinnitus [Not Recovered/Not Resolved]
  - Ear discomfort [Not Recovered/Not Resolved]
  - Hypertension [Unknown]
  - Muscle spasms [Unknown]
  - Eye pain [Not Recovered/Not Resolved]
  - Abnormal sensation in eye [Recovering/Resolving]
  - Pain [Unknown]
  - Emotional distress [Unknown]
  - Anxiety [Unknown]
  - Impaired quality of life [Unknown]
  - Discomfort [Unknown]
  - Product use complaint [Unknown]
  - Anaemia [Unknown]
  - Dyspnoea [Unknown]
  - Emphysema [Unknown]
  - Depression [Unknown]
  - Decreased appetite [Unknown]
  - Back injury [Unknown]
  - Hot flush [Unknown]
  - Myalgia [Unknown]
  - Pectus excavatum [Unknown]
  - Snoring [Unknown]
  - Gastrointestinal disorder [Unknown]

NARRATIVE: CASE EVENT DATE: 20221201
